APPROVED DRUG PRODUCT: VECURONIUM BROMIDE
Active Ingredient: VECURONIUM BROMIDE
Strength: 4MG/VIAL
Dosage Form/Route: INJECTABLE;INJECTION
Application: A075558 | Product #001
Applicant: HOSPIRA INC
Approved: Sep 11, 2001 | RLD: No | RS: No | Type: DISCN